FAERS Safety Report 8428157-6 (Version None)
Quarter: 2012Q2

REPORT INFORMATION
  Report Type: 
  Country: None (occurrence: None)
  Receive Date: 20120611
  Receipt Date: 20120607
  Transmission Date: 20120825
  Serious: Yes (Other)
  Sender: FDA-Public Use
  Company Number: DE-PFIZER INC-2012101890

PATIENT
  Age: 58 Year
  Sex: Female
  Weight: 64 kg

DRUGS (4)
  1. LYRICA [Suspect]
     Indication: NEUROPATHY PERIPHERAL
     Dosage: 25 MG, ^1-0-2^
     Route: 048
     Dates: start: 20120320, end: 20120419
  2. LYRICA [Suspect]
     Dosage: 25 MG, 2X/DAY
     Dates: start: 20120420, end: 20120507
  3. LYRICA [Suspect]
     Dosage: 25 MG, 1X/DAY
     Dates: start: 20120312, end: 20120319
  4. LEVOTHYROXINE SODIUM [Concomitant]
     Dosage: 25 UNK, UNK

REACTIONS (7)
  - FATIGUE [None]
  - FACE OEDEMA [None]
  - APHASIA [None]
  - DRY EYE [None]
  - PAIN [None]
  - VISUAL ACUITY REDUCED [None]
  - DISTURBANCE IN ATTENTION [None]
